FAERS Safety Report 9483501 (Version 1)
Quarter: 2013Q3

REPORT INFORMATION
  Report Type: Spontaneous
  Country: US (occurrence: US)
  Receive Date: 20130828
  Receipt Date: 20130828
  Transmission Date: 20140515
  Serious: Yes (Death)
  Sender: FDA-Public Use
  Company Number: US-AMGEN-KDL273833

PATIENT
  Age: 64 Year
  Sex: Male

DRUGS (6)
  1. PROCRIT [Suspect]
     Indication: PRODUCT USED FOR UNKNOWN INDICATION
     Dosage: 20000 IU, 3 TIMES/WK
     Route: 065
  2. REMERGIL [Concomitant]
  3. CARVEDILOL [Concomitant]
  4. FLUTICASONE/SALMETEROL [Concomitant]
  5. VALSARTAN [Concomitant]
  6. COMBIVENT [Concomitant]

REACTIONS (1)
  - Death [Fatal]
